FAERS Safety Report 7335449-0 (Version None)
Quarter: 2011Q1

REPORT INFORMATION
  Report Type: 
  Country: None (occurrence: None)
  Receive Date: 20110307
  Receipt Date: 20100311
  Transmission Date: 20110831
  Serious: No
  Sender: FDA-Public Use
  Company Number: US-ABBOTT-08P-163-0493973-00

PATIENT
  Sex: Female

DRUGS (1)
  1. GENGRAF [Suspect]
     Indication: TRANSPLANT
     Dosage: 0.4ML IN THE MORNING AND 0.45ML IN THE EVENING
     Route: 048
     Dates: start: 20081201

REACTIONS (2)
  - DRUG ADMINISTRATION ERROR [None]
  - ACCIDENTAL OVERDOSE [None]
